FAERS Safety Report 8032019-6 (Version None)
Quarter: 2012Q1

REPORT INFORMATION
  Report Type: 
  Country: None (occurrence: None)
  Receive Date: 20120109
  Receipt Date: 20110620
  Transmission Date: 20120608
  Serious: No
  Sender: FDA-Public Use
  Company Number: US-ABBOTT-11P-163-0733578-00

PATIENT
  Age: 56 Year
  Sex: Male
  Weight: 136 kg

DRUGS (23)
  1. TRAZODONE HCL [Concomitant]
     Indication: SLEEP DISORDER
  2. ALLEGRA [Concomitant]
     Indication: HYPERSENSITIVITY
     Route: 048
  3. LORAZEPAM [Concomitant]
     Indication: ANXIETY
  4. CARVEDILOL [Concomitant]
     Indication: MUSCLE DISORDER
  5. VICODIN [Suspect]
     Indication: NEURALGIA
     Route: 048
     Dates: start: 20110101
  6. LIPITOR [Concomitant]
     Indication: BLOOD CHOLESTEROL INCREASED
     Route: 048
     Dates: start: 19970101
  7. ASPIRIN [Concomitant]
     Indication: PRODUCT USED FOR UNKNOWN INDICATION
  8. CARVEDILOL [Concomitant]
  9. POTASSIUM CHLORIDE [Concomitant]
     Indication: CARDIAC DISORDER
  10. VITAMIN C [Concomitant]
     Indication: CARDIAC DISORDER
  11. CYMBALTA [Concomitant]
     Indication: DEPRESSION
     Route: 048
  12. VITAMIN B COMPLEX CAP [Concomitant]
     Indication: CARDIAC DISORDER
  13. SUCRALFATE [Concomitant]
     Indication: GASTROOESOPHAGEAL REFLUX DISEASE
  14. LIPITOR [Concomitant]
     Route: 048
  15. FLUOXETINE [Concomitant]
     Indication: DEPRESSION
  16. METHOCARBAMOL [Concomitant]
  17. LYRICA [Concomitant]
     Indication: NEURALGIA
     Route: 048
     Dates: end: 20110401
  18. TRAZODONE HCL [Concomitant]
     Indication: DEPRESSION
     Dosage: AT NIGHT
  19. METHOCARBAMOL [Concomitant]
     Indication: MUSCLE RELAXANT THERAPY
  20. SYNTHROID [Concomitant]
     Indication: THYROID DISORDER
     Route: 048
  21. LYRICA [Concomitant]
     Route: 048
     Dates: start: 20110501
  22. LOVAZA [Concomitant]
     Indication: BLOOD CHOLESTEROL INCREASED
     Route: 048
  23. IRON [Concomitant]
     Indication: CARDIAC DISORDER

REACTIONS (2)
  - NEURALGIA [None]
  - DRUG INEFFECTIVE [None]
